FAERS Safety Report 8004829-2 (Version None)
Quarter: 2011Q4

REPORT INFORMATION
  Report Type: 
  Country: None (occurrence: None)
  Receive Date: 20111223
  Receipt Date: 20111213
  Transmission Date: 20120403
  Serious: Yes (Hospitalization, Other)
  Sender: FDA-Public Use
  Company Number: FR-BRISTOL-MYERS SQUIBB COMPANY-16296014

PATIENT
  Age: 52 Year
  Sex: Male

DRUGS (3)
  1. REYATAZ [Suspect]
     Dosage: 1DF:2CAPS
     Route: 048
     Dates: start: 20051219, end: 20111018
  2. ISENTRESS [Concomitant]
     Dates: start: 20100629
  3. INTELENCE [Concomitant]
     Dates: start: 20100629

REACTIONS (3)
  - NEPHROLITHIASIS [None]
  - PYELONEPHRITIS [None]
  - RENAL COLIC [None]
